FAERS Safety Report 17256145 (Version 2)
Quarter: 2020Q1

REPORT INFORMATION
  Report Type: Spontaneous
  Country: PL (occurrence: PL)
  Receive Date: 20200110
  Receipt Date: 20200115
  Transmission Date: 20200409
  Serious: Yes (Hospitalization)
  Sender: FDA-Public Use
  Company Number: PL-ROCHE-2512347

PATIENT
  Age: 66 Year
  Sex: Female

DRUGS (2)
  1. BENDAMUSTINE [Suspect]
     Active Substance: BENDAMUSTINE
     Indication: PRODUCT USED FOR UNKNOWN INDICATION
     Route: 065
  2. RITUXIMAB. [Suspect]
     Active Substance: RITUXIMAB
     Indication: PRODUCT USED FOR UNKNOWN INDICATION
     Route: 041

REACTIONS (6)
  - Ventricular arrhythmia [Unknown]
  - Respiratory distress [Unknown]
  - Ventricular fibrillation [Unknown]
  - Arrhythmogenic right ventricular dysplasia [Unknown]
  - Ventricular tachycardia [Unknown]
  - Cardiac arrest [Unknown]
